FAERS Safety Report 12899501 (Version 1)
Quarter: 2016Q4

REPORT INFORMATION
  Report Type: Spontaneous
  Country: JP (occurrence: JP)
  Receive Date: 20161101
  Receipt Date: 20161101
  Transmission Date: 20170207
  Serious: Yes (Life-Threatening, Other)
  Sender: FDA-Public Use
  Company Number: JP-HQ SPECIALTY-JP-2016INT000921

PATIENT

DRUGS (4)
  1. CISPLATIN. [Suspect]
     Active Substance: CISPLATIN
     Indication: NEUROENDOCRINE CARCINOMA
     Dosage: UNK, CYCLES 2-4
  2. ETOPOSIDE. [Suspect]
     Active Substance: ETOPOSIDE
     Indication: COLORECTAL CANCER
     Dosage: 100% DOSE, INITIAL CYCLE
  3. CISPLATIN. [Suspect]
     Active Substance: CISPLATIN
     Indication: COLORECTAL CANCER
     Dosage: 80% DOSE, INITIAL CYCLE
  4. ETOPOSIDE. [Suspect]
     Active Substance: ETOPOSIDE
     Indication: NEUROENDOCRINE CARCINOMA
     Dosage: REDUCED DOSE, CYCLES 2-4

REACTIONS (3)
  - Febrile neutropenia [Recovered/Resolved]
  - Neutropenia [Unknown]
  - Leukopenia [Unknown]
